FAERS Safety Report 11518054 (Version 2)
Quarter: 2015Q4

REPORT INFORMATION
  Report Type: Spontaneous
  Country: US (occurrence: US)
  Receive Date: 20150917
  Receipt Date: 20151216
  Transmission Date: 20160304
  Serious: No
  Sender: FDA-Public Use
  Company Number: US-GALDERMA-US15005999

PATIENT
  Sex: Female

DRUGS (1)
  1. MIRVASO [Suspect]
     Active Substance: BRIMONIDINE TARTRATE
     Indication: ROSACEA
     Dosage: 0.33%
     Route: 061
     Dates: start: 20150429, end: 20150717

REACTIONS (3)
  - Dry eye [Recovering/Resolving]
  - Eye irritation [Recovering/Resolving]
  - Giant papillary conjunctivitis [Recovering/Resolving]

NARRATIVE: CASE EVENT DATE: 20150717
